FAERS Safety Report 5512008-3 (Version None)
Quarter: 2007Q4

REPORT INFORMATION
  Report Type: 
  Country: None (occurrence: None)
  Receive Date: 20071109
  Receipt Date: 20071106
  Transmission Date: 20080405
  Serious: Yes (Death)
  Sender: FDA-Public Use
  Company Number: IT-MERCK-0706ITA00041

PATIENT
  Age: 75 Year
  Sex: Male

DRUGS (5)
  1. ZOCOR [Suspect]
     Indication: MYOCARDIAL ISCHAEMIA
     Route: 048
     Dates: start: 19950501, end: 20021129
  2. ALUMINUM HYDROXIDE AND ASPIRIN AND MAGNESIUM HYDROXIDE [Concomitant]
     Route: 048
     Dates: start: 19950101
  3. DILTIAZEM HYDROCHLORIDE [Concomitant]
     Route: 048
     Dates: start: 19950101
  4. ISOSORBIDE MONONITRATE [Concomitant]
     Route: 048
     Dates: start: 19950101
  5. FUROSEMIDE [Concomitant]
     Route: 048
     Dates: start: 19950101

REACTIONS (1)
  - HEPATIC NEOPLASM MALIGNANT [None]
